FAERS Safety Report 12341579 (Version 2)
Quarter: 2016Q2

REPORT INFORMATION
  Report Type: Report from Study
  Country: HK (occurrence: HK)
  Receive Date: 20160506
  Receipt Date: 20160520
  Transmission Date: 20160815
  Serious: Yes (Hospitalization)
  Sender: FDA-Public Use
  Company Number: HK-ABBVIE-16P-075-1620479-00

PATIENT
  Age: 70 Year
  Sex: Female
  Weight: 58.6 kg

DRUGS (21)
  1. DASABUVIR [Suspect]
     Active Substance: DASABUVIR
     Route: 048
     Dates: start: 20150424, end: 20150425
  2. RIBAVIRIN. [Concomitant]
     Active Substance: RIBAVIRIN
     Indication: HEPATITIS C
     Route: 048
     Dates: start: 20150217, end: 20150222
  3. HUMULIN NOS [Concomitant]
     Active Substance: INSULIN HUMAN
     Indication: TYPE 2 DIABETES MELLITUS
     Dosage: 30 UNITS IN MORNING, 10 UNITS IN AFTERNOON
     Route: 058
     Dates: start: 20150226, end: 20150226
  4. ACTRAPID [Concomitant]
     Active Substance: INSULIN HUMAN
     Indication: TYPE 2 DIABETES MELLITUS
     Dosage: 4 UNITS 3 TIMES A DAY AND 4 UNITS AT INGHT
     Route: 058
     Dates: start: 20150224
  5. FLEET ENEMA [Concomitant]
     Active Substance: SODIUM PHOSPHATE, DIBASIC\SODIUM PHOSPHATE, MONOBASIC
     Indication: PRODUCT USED FOR UNKNOWN INDICATION
     Dosage: 1 BOTTLE WHEN NECESSARY (133 ML, 1 IN I DAY)
     Route: 054
     Dates: start: 20150224
  6. OMBITASVIR/PARITAPREVIR/RITONAVIR [Suspect]
     Active Substance: OMBITASVIR\PARITAPREVIR\RITONAVIR
     Route: 048
     Dates: start: 20150424, end: 20150425
  7. DASABUVIR [Suspect]
     Active Substance: DASABUVIR
     Indication: HEPATITIS C
     Route: 048
     Dates: start: 20150217, end: 20150222
  8. OMBITASVIR/PARITAPREVIR/RITONAVIR [Suspect]
     Active Substance: OMBITASVIR\PARITAPREVIR\RITONAVIR
     Indication: HEPATITIS C
     Route: 048
     Dates: start: 20150217, end: 20150222
  9. DASABUVIR [Suspect]
     Active Substance: DASABUVIR
     Route: 048
     Dates: start: 20150411, end: 20150418
  10. RIBAVIRIN. [Concomitant]
     Active Substance: RIBAVIRIN
     Route: 048
     Dates: start: 20150411, end: 20150418
  11. MAXOLON [Concomitant]
     Active Substance: METOCLOPRAMIDE HYDROCHLORIDE
     Indication: PRODUCT USED FOR UNKNOWN INDICATION
     Dosage: 30 MINUTES BEFORE MEAL, AS NEEDED (10 MG,M 3 IN ONE DAY)
     Route: 048
     Dates: start: 20150223
  12. ACETYLSALICYLIC ACID [Concomitant]
     Active Substance: ASPIRIN
     Dosage: TAKE WITH/AFTER MEAL
     Dates: start: 20130327, end: 20150222
  13. OMBITASVIR/PARITAPREVIR/RITONAVIR [Suspect]
     Active Substance: OMBITASVIR\PARITAPREVIR\RITONAVIR
     Route: 048
     Dates: start: 20150411, end: 20150418
  14. HUMULIN NOS [Concomitant]
     Active Substance: INSULIN HUMAN
     Dosage: 44 UNITS IN MORNING, 36 UNITS IN AFTERNOON
     Route: 058
     Dates: start: 20140514, end: 20150222
  15. RIBAVIRIN. [Concomitant]
     Active Substance: RIBAVIRIN
     Route: 048
     Dates: start: 20150424, end: 20150425
  16. SODIUM CHLORIDE. [Concomitant]
     Active Substance: SODIUM CHLORIDE
     Indication: PRODUCT USED FOR UNKNOWN INDICATION
     Route: 048
     Dates: start: 20150225
  17. HUMULIN NOS [Concomitant]
     Active Substance: INSULIN HUMAN
     Dosage: 44 UNITS IN MORNING, 34 UNITS IN AFTERNOON
     Route: 058
     Dates: start: 20130327, end: 20140513
  18. GLYCERYL TRINITRATE [Concomitant]
     Active Substance: NITROGLYCERIN
     Indication: PRODUCT USED FOR UNKNOWN INDICATION
     Dosage: ONCE WHEN NECESSARY (1 TABLET, AS REQUIRED)
     Route: 060
     Dates: start: 20130327
  19. ACETYLSALICYLIC ACID [Concomitant]
     Active Substance: ASPIRIN
     Indication: PRODUCT USED FOR UNKNOWN INDICATION
     Dates: start: 200103
  20. NIFEDIPINE. [Concomitant]
     Active Substance: NIFEDIPINE
     Indication: HYPERTENSION
     Route: 048
     Dates: start: 20130327
  21. VENTOLIN [Concomitant]
     Active Substance: ALBUTEROL SULFATE
     Indication: PRODUCT USED FOR UNKNOWN INDICATION
     Dosage: WHEN NECESSARY (2 PUFF, 4 IN 1 D)
     Route: 055
     Dates: start: 20150223

REACTIONS (4)
  - Acute kidney injury [Recovered/Resolved]
  - Vomiting [Recovered/Resolved]
  - Urinary retention [Recovered/Resolved]
  - Dehydration [Recovered/Resolved]

NARRATIVE: CASE EVENT DATE: 20150418
